FAERS Safety Report 10094865 (Version 2)
Quarter: 2014Q3

REPORT INFORMATION
  Report Type: Spontaneous
  Country: GB (occurrence: GB)
  Receive Date: 20140422
  Receipt Date: 20140815
  Transmission Date: 20150326
  Serious: Yes (Death)
  Sender: FDA-Public Use
  Company Number: GB-VERTEX PHARMACEUTICALS INC-2014-001990

PATIENT

DRUGS (9)
  1. REBETOL [Suspect]
     Active Substance: RIBAVIRIN
     Dosage: 200 MG, BID
     Route: 048
     Dates: start: 20140212
  2. BISOPROLOL [Concomitant]
     Active Substance: BISOPROLOL
     Indication: HYPERTENSION
     Dosage: DOSAGE FORM: UNSPECIFIED, 2.5 (UNITS UNSPECIFIED) DAILY
     Route: 048
  3. REBETOL [Suspect]
     Active Substance: RIBAVIRIN
     Indication: HEPATIC CIRRHOSIS
     Dosage: DOSAGE FORM: UNSPECIFIED, 400 MG IN MORNING AND 600 MG IN EVENING DAILY, ^REDUCED SEQUENTIALLY TO 20
     Route: 048
     Dates: start: 20131030, end: 20140212
  4. INCIVO [Suspect]
     Active Substance: TELAPREVIR
     Indication: HEPATIC CIRRHOSIS
     Dosage: 1125 (UNITS UNSPECIFIED) TWICE DAILY
     Route: 048
     Dates: start: 20131127, end: 20140227
  5. VIRAFERONPEG [Suspect]
     Active Substance: PEGINTERFERON ALFA-2B
     Indication: CHRONIC HEPATITIS C
     Dosage: 80 ?G, UNK
     Route: 058
     Dates: start: 20131218
  6. VIRAFERONPEG [Suspect]
     Active Substance: PEGINTERFERON ALFA-2B
     Dosage: 100 ?G, UNK
     Route: 058
     Dates: start: 20131030, end: 20131218
  7. CODEINE PHOSPHATE [Concomitant]
     Active Substance: CODEINE PHOSPHATE
     Indication: BACK PAIN
     Dosage: DOSAGE FORM: UNSPECIFIED, 30 UNITS UNSPECIFIED
     Route: 048
  8. AMITRIPTYLINE [Concomitant]
     Active Substance: AMITRIPTYLINE
     Indication: INSOMNIA
     Dosage: DOSAGE FORM: UNSPECIFIED, 10 (UNITS UNSPECIFIED) AT NIGHT
  9. LOSARTAN [Concomitant]
     Active Substance: LOSARTAN
     Indication: PRODUCT USED FOR UNKNOWN INDICATION
     Dosage: DOSAGE FORM: UNSPECIFIED, 50 (UNITS UNSPECIFIED) DAILY
     Route: 048

REACTIONS (5)
  - Pulmonary oedema [Fatal]
  - Off label use [Unknown]
  - Myocardial ischaemia [Fatal]
  - Vomiting [Unknown]
  - Emphysema [Fatal]
